FAERS Safety Report 5768678-8 (Version None)
Quarter: 2008Q2

REPORT INFORMATION
  Report Type: 
  Country: None (occurrence: None)
  Receive Date: 20080610
  Receipt Date: 20080604
  Transmission Date: 20081010
  Serious: Yes (Hospitalization, Other)
  Sender: FDA-Public Use
  Company Number: 2008SP009502

PATIENT
  Age: 29 Year
  Sex: Male
  Weight: 80 kg

DRUGS (2)
  1. PEG-INTRON [Suspect]
     Indication: HEPATITIS C
     Dosage: 150 MCG; QW; SC
     Route: 058
     Dates: start: 20050826
  2. REBETOL [Suspect]
     Indication: HEPATITIS C
     Dosage: 1200 MG; QD; PO
     Route: 048
     Dates: start: 20050826

REACTIONS (5)
  - ABDOMINAL WALL ABSCESS [None]
  - CELLULITIS [None]
  - GENERAL PHYSICAL HEALTH DETERIORATION [None]
  - INJECTION SITE ABSCESS [None]
  - SALMONELLOSIS [None]
